FAERS Safety Report 21234461 (Version 7)
Quarter: 2023Q4

REPORT INFORMATION
  Report Type: Spontaneous
  Country: US (occurrence: US)
  Receive Date: 20220820
  Receipt Date: 20231116
  Transmission Date: 20240109
  Serious: Yes (Other)
  Sender: FDA-Public Use
  Company Number: US-CELGENE-USA-20220301430

PATIENT
  Age: 48 Year
  Sex: Male

DRUGS (6)
  1. REVLIMID [Suspect]
     Active Substance: LENALIDOMIDE
     Indication: Plasma cell myeloma
     Dosage: 25 MILLIGRAM
     Route: 048
     Dates: start: 202006
  2. REVLIMID [Suspect]
     Active Substance: LENALIDOMIDE
     Dosage: 10 MILLIGRAM, ONCE DAILY FOR 21 DAYS ON AND 7 DAYS OFF
     Route: 048
     Dates: start: 202109
  3. REVLIMID [Suspect]
     Active Substance: LENALIDOMIDE
     Route: 048
     Dates: start: 202006
  4. ZOMETA [Suspect]
     Active Substance: ZOLEDRONIC ACID
     Indication: Osteolysis
     Dosage: EVERY 3 MONTHS
     Route: 042
     Dates: start: 20210109
  5. ACETAMINOPHEN [Concomitant]
     Active Substance: ACETAMINOPHEN
     Indication: Pain
     Dosage: PRN
     Route: 048
  6. BUSPIRONE [Concomitant]
     Active Substance: BUSPIRONE HYDROCHLORIDE
     Indication: Depression
     Dosage: PRN
     Route: 048
     Dates: start: 20220325

REACTIONS (17)
  - Restlessness [Unknown]
  - Fatigue [Unknown]
  - Pain in extremity [Unknown]
  - Neuropathy peripheral [Recovered/Resolved]
  - Insomnia [Unknown]
  - Pyrexia [Unknown]
  - Anxiety [Unknown]
  - Faeces soft [Unknown]
  - Constipation [Unknown]
  - Pruritus [Unknown]
  - Dermatitis allergic [Unknown]
  - Hallucination [Unknown]
  - Bone pain [Unknown]
  - Diarrhoea [Unknown]
  - Headache [Unknown]
  - Haematochezia [Unknown]
  - Depression [Unknown]

NARRATIVE: CASE EVENT DATE: 20220927
